FAERS Safety Report 7403279-7 (Version None)
Quarter: 2011Q1

REPORT INFORMATION
  Report Type: 
  Country: None (occurrence: None)
  Receive Date: 20110330
  Receipt Date: 20100315
  Transmission Date: 20110831
  Serious: No
  Sender: FDA-Public Use
  Company Number: DKLU1060323

PATIENT

DRUGS (1)
  1. DESOXYN [Suspect]
     Indication: ATTENTION DEFICIT/HYPERACTIVITY DISORDER
     Dosage: 5 MG MILLIGRAM(S)

REACTIONS (1)
  - DRUG HYPERSENSITIVITY [None]
